FAERS Safety Report 5400417-2 (Version None)
Quarter: 2007Q3

REPORT INFORMATION
  Report Type: 
  Country: None (occurrence: None)
  Receive Date: 20070730
  Receipt Date: 20070725
  Transmission Date: 20080115
  Serious: Yes (Hospitalization)
  Sender: FDA-Public Use
  Company Number: B0480659A

PATIENT
  Age: 61 Year
  Sex: Male
  Weight: 62 kg

DRUGS (5)
  1. EPIVIR [Suspect]
     Indication: HIV INFECTION
     Dosage: 300MG PER DAY
     Route: 048
     Dates: start: 20050415
  2. VIDEX [Suspect]
     Indication: HIV INFECTION
     Dosage: 250MG PER DAY
     Route: 048
     Dates: start: 20050415
  3. ZYPREXA [Suspect]
     Indication: NEUROPATHY
     Dosage: 7.5MG PER DAY
     Route: 065
  4. REYATAZ [Concomitant]
     Indication: HIV INFECTION
     Dosage: 300MG PER DAY
     Route: 048
     Dates: start: 20050415
  5. NORVIR [Concomitant]
     Indication: HIV INFECTION
     Dosage: 100MG PER DAY
     Route: 048
     Dates: start: 20050415

REACTIONS (19)
  - ACID BASE BALANCE ABNORMAL [None]
  - AKINESIA [None]
  - ANAEMIA MACROCYTIC [None]
  - AREFLEXIA [None]
  - BLOOD CREATINE PHOSPHOKINASE INCREASED [None]
  - BLOOD CREATININE INCREASED [None]
  - FOLATE DEFICIENCY [None]
  - GENERAL PHYSICAL HEALTH DETERIORATION [None]
  - HYPERKALAEMIA [None]
  - HYPERURICAEMIA [None]
  - MITOCHONDRIAL CYTOPATHY [None]
  - MUSCLE RIGIDITY [None]
  - NEUROPATHY PERIPHERAL [None]
  - PAIN IN EXTREMITY [None]
  - PARAESTHESIA [None]
  - PARKINSONISM [None]
  - PROTEINURIA [None]
  - RENAL FAILURE [None]
  - RENAL TUBULAR DISORDER [None]
